FAERS Safety Report 8983707 (Version 3)
Quarter: 2013Q1

REPORT INFORMATION
  Report Type: Report from Study
  Country: JP (occurrence: JP)
  Receive Date: 20121224
  Receipt Date: 20130211
  Transmission Date: 20140127
  Serious: Yes (Other)
  Sender: FDA-Public Use
  Company Number: JP-OTSUKA-JP-2012-17229

PATIENT
  Age: 58 Year
  Sex: Male
  Weight: 76 kg

DRUGS (26)
  1. SAMSCA [Suspect]
     Indication: FLUID RETENTION
     Dosage: 7.5 MG MILLIGRAM(S), QAM
     Route: 048
     Dates: start: 20121107, end: 20121107
  2. POTASSIUM CHLORIDE [Concomitant]
     Indication: PROPHYLAXIS
     Dosage: 30 MEQ, DAILY DOSE
     Route: 041
     Dates: end: 20121105
  3. SEISHOKU [Concomitant]
     Indication: INFUSION
     Dosage: 480 ML MILLILITRE(S), DAILY DOSE
     Route: 041
     Dates: end: 20121105
  4. SEISHOKU [Concomitant]
     Dosage: UNK
     Route: 041
  5. BAYASPIRIN [Concomitant]
     Dosage: 100 MG MILLIGRAM(S), DAILY DOSE
     Route: 048
  6. MEVALOTIN [Concomitant]
     Dosage: 10 MG MILLIGRAM(S), DAILY DOSE
     Route: 048
  7. ADALAT CR [Concomitant]
     Dosage: 40 MG MILLIGRAM(S), DAILY DOSE
     Route: 048
  8. PARIET [Concomitant]
     Dosage: 10 MG MILLIGRAM(S), DAILY DOSE
     Route: 048
  9. FUROSEMIDE [Concomitant]
     Indication: CARDIAC FAILURE
     Dosage: 40 MG MILLIGRAM(S), DAILY DOSE
     Route: 048
  10. MYOCOR [Concomitant]
     Indication: CARDIAC FAILURE
     Dosage: 72 MG MILLIGRAM(S), DAILY DOSE
     Route: 041
  11. HANP [Concomitant]
     Indication: CARDIAC FAILURE
     Dosage: 250 MCG, DAILY DOSE
     Route: 041
  12. LASIX [Concomitant]
     Indication: CARDIAC FAILURE
     Dosage: 72 MG MILLIGRAM(S), DAILY DOSE
     Route: 041
  13. PERDIPINE [Concomitant]
     Indication: CARDIAC FAILURE
     Dosage: 96 MG MILLIGRAM(S), DAILY DOSE
     Route: 041
  14. PROPOFOL [Concomitant]
     Indication: PROPHYLAXIS
     Dosage: 96 ML MILLILITRE(S), DAILY DOSE
     Route: 041
  15. VASOLATOR [Concomitant]
     Dosage: 27 MG MILLIGRAM(S), DAILY DOSE
     Route: 061
  16. ALLORIN [Concomitant]
     Dosage: 100 MG MILLIGRAM(S), DAILY DOSE
     Route: 048
  17. ARTIST [Concomitant]
     Indication: CARDIAC FAILURE
     Dosage: 10 MG MILLIGRAM(S), DAILY DOSE
     Route: 048
  18. SOLOMUCO [Concomitant]
     Dosage: 45 MG MILLIGRAM(S), DAILY DOSE
     Route: 048
  19. OLMETEC [Concomitant]
     Dosage: 20 MG MILLIGRAM(S), DAILY DOSE
     Route: 048
  20. SOLDEM 3A [Concomitant]
     Indication: CARDIAC FAILURE
     Dosage: UNK
     Route: 041
  21. SOLDEM 3A [Concomitant]
     Indication: PROPHYLAXIS
  22. VITAMEDIN [Concomitant]
     Indication: CARDIAC FAILURE
     Dosage: UNK
     Route: 041
  23. VITAMEDIN [Concomitant]
     Indication: PROPHYLAXIS
  24. ROCEPHIN [Concomitant]
     Indication: PROPHYLAXIS
     Dosage: 2 G GRAM(S), DAILY DOSE
     Route: 042
  25. TAKEPRON [Concomitant]
     Indication: PROPHYLAXIS
     Dosage: 2 G GRAM(S), DAILY DOSE
     Route: 042
  26. ANTIBIOTIC PREPARATIONS [Concomitant]
     Route: 065

REACTIONS (2)
  - Renal failure chronic [Recovering/Resolving]
  - Acute respiratory failure [Recovered/Resolved]
